FAERS Safety Report 9809290 (Version 4)
Quarter: 2014Q2

REPORT INFORMATION
  Report Type: Report from Study
  Country: CH (occurrence: CH)
  Receive Date: 20140110
  Receipt Date: 20140630
  Transmission Date: 20141212
  Serious: Yes (Death, Hospitalization)
  Sender: FDA-Public Use
  Company Number: CH-CELGENEUS-151-21660-14010522

PATIENT
  Age: 56 Year
  Sex: Female

DRUGS (7)
  1. ABRAXANE [Suspect]
     Indication: BREAST CANCER METASTATIC
     Dosage: 150 MILLIGRAM/SQ. METER
     Route: 041
     Dates: start: 20131106
  2. ABRAXANE [Suspect]
     Dosage: 150 MILLIGRAM/SQ. METER
     Route: 041
     Dates: end: 20140127
  3. ATACAND [Concomitant]
     Indication: PRODUCT USED FOR UNKNOWN INDICATION
     Route: 065
     Dates: start: 20130630
  4. CALCIMAGON [Concomitant]
     Indication: PRODUCT USED FOR UNKNOWN INDICATION
     Route: 065
     Dates: start: 20130630
  5. ASA [Concomitant]
     Indication: PRODUCT USED FOR UNKNOWN INDICATION
     Route: 065
     Dates: start: 20130630
  6. ESOMEP [Concomitant]
     Indication: PRODUCT USED FOR UNKNOWN INDICATION
     Route: 065
     Dates: start: 20130630
  7. XGERA [Concomitant]
     Indication: PRODUCT USED FOR UNKNOWN INDICATION
     Route: 065
     Dates: start: 20130830

REACTIONS (2)
  - Pancreatitis [Fatal]
  - Multi-organ failure [Fatal]
